FAERS Safety Report 8932536 (Version 1)
Quarter: 2012Q4

REPORT INFORMATION
  Report Type: Spontaneous
  Country: US (occurrence: None)
  Receive Date: 20121121
  Receipt Date: 20121121
  Transmission Date: 20130627
  Serious: Yes (Hospitalization)
  Sender: FDA-Public Use
  Company Number: None

PATIENT

DRUGS (1)
  1. LOSARTAN [Suspect]
     Indication: HYPERTENSION
     Dosage: 50mg 1 per day
     Dates: start: 201001, end: 201208

REACTIONS (4)
  - Loss of consciousness [None]
  - Syncope [None]
  - Blood pressure decreased [None]
  - Blood pressure inadequately controlled [None]
